FAERS Safety Report 7665857-X (Version None)
Quarter: 2011Q3

REPORT INFORMATION
  Report Type: 
  Country: None (occurrence: None)
  Receive Date: 20110806
  Receipt Date: 20110502
  Transmission Date: 20111222
  Serious: No
  Sender: FDA-Public Use
  Company Number: US-ABBOTT-11P-163-0723475-00

PATIENT
  Sex: Male
  Weight: 128.03 kg

DRUGS (7)
  1. NIASPAN [Suspect]
     Indication: BLOOD CHOLESTEROL INCREASED
     Dates: start: 20110401, end: 20110428
  2. LEVOTHYROXINE SODIUM [Concomitant]
     Indication: HYPOTHYROIDISM
  3. PLAVIX [Concomitant]
     Indication: PROPHYLAXIS
  4. LIPITOR [Concomitant]
     Indication: BLOOD CHOLESTEROL INCREASED
  5. ASPIRIN [Concomitant]
     Indication: PROPHYLAXIS
  6. NIASPAN [Suspect]
     Dates: start: 20110429, end: 20110430
  7. ZETIA [Concomitant]
     Indication: BLOOD CHOLESTEROL INCREASED

REACTIONS (1)
  - DIARRHOEA [None]
